FAERS Safety Report 25375593 (Version 1)
Quarter: 2025Q2

REPORT INFORMATION
  Report Type: Spontaneous
  Country: US (occurrence: US)
  Receive Date: 20250529
  Receipt Date: 20250529
  Transmission Date: 20250717
  Serious: No
  Sender: SANOFI AVENTIS
  Company Number: US-SA-2025SA149304

PATIENT
  Sex: Female
  Weight: 60.55 kg

DRUGS (22)
  1. DUPIXENT [Suspect]
     Active Substance: DUPILUMAB
     Indication: Asthma
     Dosage: 300 MG, QOW
     Route: 058
  2. ENBREL [Concomitant]
     Active Substance: ETANERCEPT
  3. FASENRA [Concomitant]
     Active Substance: BENRALIZUMAB
  4. ONDANSETRON HYDROCHLORIDE [Concomitant]
     Active Substance: ONDANSETRON HYDROCHLORIDE
  5. AMBIEN [Concomitant]
     Active Substance: ZOLPIDEM TARTRATE
  6. MAGNESIUM [Concomitant]
     Active Substance: MAGNESIUM
  7. XIIDRA [Concomitant]
     Active Substance: LIFITEGRAST
  8. LINZESS [Concomitant]
     Active Substance: LINACLOTIDE
  9. ATORVASTATIN CALCIUM [Concomitant]
     Active Substance: ATORVASTATIN CALCIUM
  10. FAMOTIDINE [Concomitant]
     Active Substance: FAMOTIDINE
  11. DESVENLAFAXINE [Concomitant]
     Active Substance: DESVENLAFAXINE
  12. METOPROLOL SUCCINATE [Concomitant]
     Active Substance: METOPROLOL SUCCINATE
  13. CHLORTHALIDONE [Concomitant]
     Active Substance: CHLORTHALIDONE
  14. HYDROXYZINE HYDROCHLORIDE [Concomitant]
     Active Substance: HYDROXYZINE HYDROCHLORIDE
  15. PROMETHAZINE HYDROCHLORIDE [Concomitant]
     Active Substance: PROMETHAZINE HYDROCHLORIDE
  16. ALPRAZOLAM [Concomitant]
     Active Substance: ALPRAZOLAM
  17. CYCLOBENZAPRINE HYDROCHLORIDE [Concomitant]
     Active Substance: CYCLOBENZAPRINE HYDROCHLORIDE
  18. ARIPIPRAZOLE [Concomitant]
     Active Substance: ARIPIPRAZOLE
  19. POTASSIUM CHLORIDE [Concomitant]
     Active Substance: POTASSIUM CHLORIDE
  20. FLONASE ALLERGY RELIEF [Concomitant]
     Active Substance: FLUTICASONE PROPIONATE
  21. TYRVAYA [Concomitant]
     Active Substance: VARENICLINE TARTRATE
  22. LUPRON DEPOT [Concomitant]
     Active Substance: LEUPROLIDE ACETATE

REACTIONS (1)
  - Drug hypersensitivity [Unknown]
